FAERS Safety Report 13048262 (Version 1)
Quarter: 2016Q4

REPORT INFORMATION
  Report Type: Spontaneous
  Country: US (occurrence: US)
  Receive Date: 20161220
  Receipt Date: 20161220
  Transmission Date: 20170207
  Serious: Yes (Life-Threatening)
  Sender: FDA-Public Use
  Company Number: None

PATIENT
  Age: 74 Year
  Sex: Male
  Weight: 111 kg

DRUGS (1)
  1. CEFTRIAXONE. [Suspect]
     Active Substance: CEFTRIAXONE
     Indication: URINARY TRACT INFECTION
     Dosage: ?          OTHER FREQUENCY:X 1;?
     Route: 042
     Dates: start: 20161205, end: 20161205

REACTIONS (4)
  - Infusion site pruritus [None]
  - Unresponsive to stimuli [None]
  - Anaphylactic reaction [None]
  - Infusion site erythema [None]

NARRATIVE: CASE EVENT DATE: 20161205
